FAERS Safety Report 6906721-0 (Version None)
Quarter: 2010Q3

REPORT INFORMATION
  Report Type: 
  Country: None (occurrence: None)
  Receive Date: 20100804
  Receipt Date: 20090812
  Transmission Date: 20110219
  Serious: Yes (Death)
  Sender: FDA-Public Use
  Company Number: US-BAYER-200924557NA

PATIENT
  Age: 43 Year
  Sex: Male

DRUGS (22)
  1. MAGNEVIST [Suspect]
     Indication: NUCLEAR MAGNETIC RESONANCE IMAGING
     Route: 042
     Dates: start: 20021220, end: 20021220
  2. MAGNEVIST [Suspect]
     Route: 042
     Dates: start: 20030513, end: 20030513
  3. OMNISCAN [Suspect]
     Indication: NUCLEAR MAGNETIC RESONANCE IMAGING
     Dates: start: 20031201, end: 20031201
  4. OPTIMARK [Suspect]
     Indication: ANGIOGRAM
     Dates: start: 20040126, end: 20040126
  5. OPTIMARK [Suspect]
     Dates: start: 20040312, end: 20040312
  6. LISINOPRIL [Concomitant]
  7. COREG [Concomitant]
  8. NIFEDIPINE [Concomitant]
  9. ASPIRIN [Concomitant]
  10. PLAVIX [Concomitant]
  11. FOSRENOL [Concomitant]
     Dosage: 500 MG TWO TABLETS WITH EACH MEAL
  12. SODIUM BICARB [Concomitant]
  13. NEPHRO-VITE [Concomitant]
  14. COUMADIN [Concomitant]
  15. EPOGEN [Concomitant]
  16. ALTACE [Concomitant]
  17. LOVENOX [Concomitant]
  18. HUMULIN N [Concomitant]
  19. HYDROCHLOROTHIAZIDE [Concomitant]
  20. PRINIVIL [Concomitant]
  21. ALPHAGAN [Concomitant]
  22. GLUCOPHAGE [Concomitant]

REACTIONS (10)
  - JOINT CONTRACTURE [None]
  - MOBILITY DECREASED [None]
  - MUSCLE SPASMS [None]
  - MUSCULOSKELETAL STIFFNESS [None]
  - NEPHROGENIC SYSTEMIC FIBROSIS [None]
  - OEDEMA PERIPHERAL [None]
  - PAIN [None]
  - SKIN FIBROSIS [None]
  - SKIN HYPERTROPHY [None]
  - SKIN INDURATION [None]
